FAERS Safety Report 15335884 (Version 2)
Quarter: 2019Q1

REPORT INFORMATION
  Report Type: Report from Study
  Country: US (occurrence: US)
  Receive Date: 20180830
  Receipt Date: 20190116
  Transmission Date: 20190417
  Serious: Yes (Hospitalization)
  Sender: FDA-Public Use
  Company Number: US-PFIZER INC-2018321487

PATIENT
  Age: 56 Year
  Sex: Male
  Weight: 81.63 kg

DRUGS (17)
  1. BLINDED TRAMADOL HCL [Suspect]
     Active Substance: TRAMADOL HYDROCHLORIDE
     Indication: PAIN
     Dosage: UNK
     Route: 048
     Dates: start: 20170307, end: 20170321
  2. BLINDED PF-04383119 [Suspect]
     Active Substance: TANEZUMAB
     Dosage: UNK
     Route: 058
     Dates: start: 20170307, end: 20170321
  3. XANAX [Concomitant]
     Active Substance: ALPRAZOLAM
     Indication: ANXIETY
     Dosage: UNK UNK, 1X/DAY
     Route: 048
     Dates: start: 20160831
  4. BLINDED TRAMADOL HCL [Suspect]
     Active Substance: TRAMADOL HYDROCHLORIDE
     Indication: PAIN
     Dosage: UNK
     Route: 048
     Dates: start: 20170307, end: 20170321
  5. GABAPENTIN. [Concomitant]
     Active Substance: GABAPENTIN
     Indication: PAIN
     Dosage: 300 MG, 3X/DAY
     Route: 048
     Dates: start: 20161128
  6. BLINDED PLACEBO [Suspect]
     Active Substance: INVESTIGATIONAL PRODUCT
     Dosage: UNK
     Route: 058
     Dates: start: 20170307, end: 20170321
  7. BLINDED PLACEBO [Suspect]
     Active Substance: INVESTIGATIONAL PRODUCT
     Indication: PAIN
     Dosage: UNK
     Route: 048
     Dates: start: 20170307, end: 20170321
  8. BLINDED TRAMADOL HCL [Suspect]
     Active Substance: TRAMADOL HYDROCHLORIDE
     Dosage: UNK
     Route: 058
     Dates: start: 20170307, end: 20170321
  9. BLINDED PF-04383119 [Suspect]
     Active Substance: TANEZUMAB
     Indication: PAIN
     Dosage: UNK
     Route: 048
     Dates: start: 20170307, end: 20170321
  10. BLINDED PLACEBO [Suspect]
     Active Substance: INVESTIGATIONAL PRODUCT
     Dosage: UNK
     Route: 058
     Dates: start: 20170307, end: 20170321
  11. TYLENOL [Concomitant]
     Active Substance: ACETAMINOPHEN
     Indication: PAIN
     Dosage: 500 MG, AS NEEDED
     Route: 048
  12. BLINDED PLACEBO [Suspect]
     Active Substance: INVESTIGATIONAL PRODUCT
     Indication: PAIN
     Dosage: UNK
     Route: 048
     Dates: start: 20170307, end: 20170321
  13. BLINDED PLACEBO [Suspect]
     Active Substance: INVESTIGATIONAL PRODUCT
     Dosage: UNK
     Route: 058
     Dates: start: 20170307, end: 20170321
  14. BLINDED PF-04383119 [Suspect]
     Active Substance: TANEZUMAB
     Indication: PAIN
     Dosage: UNK
     Route: 048
     Dates: start: 20170307, end: 20170321
  15. BLINDED PLACEBO [Suspect]
     Active Substance: INVESTIGATIONAL PRODUCT
     Indication: PAIN
     Dosage: UNK
     Route: 048
     Dates: start: 20170307, end: 20170321
  16. BLINDED PF-04383119 [Suspect]
     Active Substance: TANEZUMAB
     Dosage: UNK
     Route: 058
     Dates: start: 20170307, end: 20170321
  17. BLINDED TRAMADOL HCL [Suspect]
     Active Substance: TRAMADOL HYDROCHLORIDE
     Dosage: UNK
     Route: 058
     Dates: start: 20170307, end: 20170321

REACTIONS (1)
  - Aortic aneurysm [Recovered/Resolved]

NARRATIVE: CASE EVENT DATE: 20170403
